FAERS Safety Report 13368003 (Version 1)
Quarter: 2017Q1

REPORT INFORMATION
  Report Type: Spontaneous
  Country: US (occurrence: US)
  Receive Date: 20170323
  Receipt Date: 20170323
  Transmission Date: 20170429
  Serious: No
  Sender: FDA-Public Use
  Company Number: None

PATIENT
  Age: 35 Year
  Sex: Female

DRUGS (1)
  1. AMPYRA [Suspect]
     Active Substance: DALFAMPRIDINE
     Indication: MULTIPLE SCLEROSIS
     Route: 048
     Dates: start: 20151120, end: 20170222

REACTIONS (13)
  - Haemoglobin urine present [None]
  - White blood cells urine positive [None]
  - Urine analysis abnormal [None]
  - Blood 25-hydroxycholecalciferol decreased [None]
  - CD30 expression [None]
  - Bacterial test positive [None]
  - Culture urine positive [None]
  - CD4 lymphocytes increased [None]
  - Red blood cells urine positive [None]
  - Laboratory test interference [None]
  - B-lymphocyte count decreased [None]
  - Urine leukocyte esterase positive [None]
  - Protein urine present [None]

NARRATIVE: CASE EVENT DATE: 20170306
